FAERS Safety Report 6046265-4 (Version None)
Quarter: 2009Q1

REPORT INFORMATION
  Report Type: 
  Country: None (occurrence: None)
  Receive Date: 20090122
  Receipt Date: 20090115
  Transmission Date: 20090719
  Serious: Yes (Other)
  Sender: FDA-Public Use
  Company Number: PT-BRISTOL-MYERS SQUIBB COMPANY-14473862

PATIENT
  Age: 3 Decade
  Sex: Female

DRUGS (1)
  1. DASATINIB [Suspect]
     Dosage: BEGAN DASATINIB 6 MONTHS AGO.
     Dates: start: 20080101

REACTIONS (2)
  - BENIGN BREAST NEOPLASM [None]
  - METRORRHAGIA [None]
